FAERS Safety Report 25972121 (Version 1)
Quarter: 2025Q4

REPORT INFORMATION
  Report Type: Spontaneous
  Country: US (occurrence: US)
  Receive Date: 20251029
  Receipt Date: 20251029
  Transmission Date: 20260119
  Serious: Yes (Other)
  Sender: ROCHE
  Company Number: US-ROCHE-10000417456

PATIENT
  Sex: Female

DRUGS (18)
  1. XOLAIR PFS [Suspect]
     Active Substance: OMALIZUMAB
     Indication: Asthma
     Dosage: STRENGTH: 300MG 2ML
     Route: 058
  2. XOLAIR PFS [Suspect]
     Active Substance: OMALIZUMAB
  3. ALBUTEROL SU AER 108 (90 [Concomitant]
     Dosage: 108-90
  4. IPRATROPIUM-SOL 0.5-2.5 [Concomitant]
     Dosage: 0.5-2.5
  5. AIRSUPRA AER 90-80MCG/ACT [Concomitant]
     Dosage: 90-80 MCG/ACT
  6. BUPROPION HC TB2 300MG [Concomitant]
     Dosage: 300 MG
  7. BUSPIRONE HC TAB 7.5MG [Concomitant]
  8. CELEXA TAB 40MG [Concomitant]
  9. COQ-10 CAP 400MG [Concomitant]
  10. FENOFIBRATE TAB 160MG [Concomitant]
  11. FISH OIL CAP 1200MG [Concomitant]
  12. LAMICTAL TAB 200MG [Concomitant]
  13. SALINE FLUSH SOL 0.9% [Concomitant]
  14. TIZANIDINE H CAP 4MG [Concomitant]
  15. TRAZODONE HC TAB 300MG [Concomitant]
  16. TRELEGY ELLI AEP 100-62.5 [Concomitant]
     Dosage: 100-62.5
  17. VISION VITAM TAB [Concomitant]
  18. NASONEX 24HR SUS 50MCG/AC [Concomitant]

REACTIONS (1)
  - Metastatic neoplasm [Recovered/Resolved]
